FAERS Safety Report 17766380 (Version 1)
Quarter: 2020Q2

REPORT INFORMATION
  Report Type: Spontaneous
  Country: PL (occurrence: PL)
  Receive Date: 20200511
  Receipt Date: 20200511
  Transmission Date: 20200714
  Serious: Yes (Other)
  Sender: FDA-Public Use
  Company Number: PL-ACCORD-181024

PATIENT
  Age: 70 Year
  Sex: Female
  Weight: 82 kg

DRUGS (10)
  1. FLUOROURACIL. [Suspect]
     Active Substance: FLUOROURACIL
     Indication: COLON CANCER
     Route: 042
     Dates: start: 20180207
  2. POLFENON [Concomitant]
     Active Substance: PROPAFENONE HYDROCHLORIDE
  3. KALIPOZ [Concomitant]
     Active Substance: POTASSIUM CHLORIDE
  4. XARELTO [Concomitant]
     Active Substance: RIVAROXABAN
  5. CO PRESTARIUM [Concomitant]
  6. BISOCARD [Concomitant]
     Active Substance: BISOPROLOL
  7. FOLINIC ACID [Concomitant]
     Active Substance: LEUCOVORIN
     Dosage: SODIUM L-FOLINATE
     Route: 042
  8. DEXAMETHASONE. [Concomitant]
     Active Substance: DEXAMETHASONE
     Route: 042
  9. EUTHYROX [Concomitant]
     Active Substance: LEVOTHYROXINE SODIUM
  10. ONDANSETRON [Concomitant]
     Active Substance: ONDANSETRON
     Route: 042

REACTIONS (4)
  - Atrial fibrillation [Recovering/Resolving]
  - Blood pressure decreased [Recovering/Resolving]
  - Eructation [Recovering/Resolving]
  - Dyspepsia [Recovering/Resolving]

NARRATIVE: CASE EVENT DATE: 20180604
